FAERS Safety Report 12400428 (Version 1)
Quarter: 2016Q2

REPORT INFORMATION
  Report Type: Spontaneous
  Country: US (occurrence: None)
  Receive Date: 20160524
  Receipt Date: 20160524
  Transmission Date: 20160815
  Serious: Yes (Life-Threatening, Disabling, Other)
  Sender: FDA-Public Use
  Company Number: None

PATIENT
  Age: 61 Year
  Sex: Male
  Weight: 79.83 kg

DRUGS (4)
  1. LISINOPRIL. [Concomitant]
     Active Substance: LISINOPRIL
  2. PROAIR HFA [Concomitant]
     Active Substance: ALBUTEROL SULFATE
  3. ASPIRIN. [Concomitant]
     Active Substance: ASPIRIN
  4. LUPRON DEPOT [Suspect]
     Active Substance: LEUPROLIDE ACETATE
     Indication: PROSTATE CANCER
     Dosage: 6 MONTHS DR INJECTED
     Dates: start: 20160404, end: 20160404

REACTIONS (17)
  - Dizziness [None]
  - Testicular pain [None]
  - Restlessness [None]
  - Headache [None]
  - Hyperhidrosis [None]
  - Hot flush [None]
  - Weight increased [None]
  - Erectile dysfunction [None]
  - Libido decreased [None]
  - Amnesia [None]
  - Insomnia [None]
  - Paraesthesia [None]
  - Pruritus [None]
  - Anal incontinence [None]
  - Urinary tract obstruction [None]
  - Depression [None]
  - Hypertension [None]

NARRATIVE: CASE EVENT DATE: 20160404
